FAERS Safety Report 22021389 (Version 1)
Quarter: 2023Q1

REPORT INFORMATION
  Report Type: Spontaneous
  Country: PL (occurrence: PL)
  Receive Date: 20230222
  Receipt Date: 20230222
  Transmission Date: 20230418
  Serious: Yes (Life-Threatening, Hospitalization, Other)
  Sender: FDA-Public Use
  Company Number: PL-ANTARES PHARMA, INC.-2023-LIT-TE-0008

PATIENT

DRUGS (7)
  1. TESTOSTERONE ENANTHATE [Suspect]
     Active Substance: TESTOSTERONE ENANTHATE
     Indication: Drug abuse
     Dosage: UNK, UNKNOWN
     Route: 065
  2. TESTOSTERONE UNDECANOATE [Suspect]
     Active Substance: TESTOSTERONE UNDECANOATE
     Indication: Drug abuse
     Dosage: UNK, UNKNOWN
     Route: 065
  3. TESTOSTERONE PROPIONATE [Suspect]
     Active Substance: TESTOSTERONE PROPIONATE
     Indication: Drug abuse
     Dosage: UNK, UNKNOWN
     Route: 065
  4. BOLDENONE [Suspect]
     Active Substance: BOLDENONE
     Indication: Drug abuse
     Dosage: UNK, UNKNOWN
     Route: 065
  5. STANOZOLOL [Suspect]
     Active Substance: STANOZOLOL
     Indication: Drug abuse
     Dosage: UNK, UNKNOWN
     Route: 065
  6. TRENBOLONE ENANTHATE [Suspect]
     Active Substance: TRENBOLONE ENANTHATE
     Indication: Drug abuse
     Dosage: UNK, UNKNOWN
     Route: 065
  7. METHANDROSTENOLONE [Suspect]
     Active Substance: METHANDROSTENOLONE
     Indication: Drug abuse
     Dosage: UNK, UNKNOWN
     Route: 065

REACTIONS (15)
  - Drug abuse [Recovered/Resolved]
  - Cardiomegaly [Unknown]
  - Left ventricular hypertrophy [Recovering/Resolving]
  - Congestive cardiomyopathy [Unknown]
  - Dyspnoea exertional [Unknown]
  - Cardiac failure chronic [Unknown]
  - Ventricular hypokinesia [Recovering/Resolving]
  - Electrocardiogram T wave inversion [Unknown]
  - Cardiac failure chronic [Recovered/Resolved]
  - Pulmonary congestion [Unknown]
  - Dyspnoea at rest [Unknown]
  - Oedema peripheral [Unknown]
  - Jaundice [Unknown]
  - Hepatic function abnormal [Recovered/Resolved]
  - Drug-induced liver injury [Recovered/Resolved]
